FAERS Safety Report 5595506-6 (Version None)
Quarter: 2008Q1

REPORT INFORMATION
  Report Type: 
  Country: None (occurrence: None)
  Receive Date: 20080118
  Receipt Date: 20080114
  Transmission Date: 20080703
  Serious: Yes (Other)
  Sender: FDA-Public Use
  Company Number: DE-JNJFOC-20071204623

PATIENT
  Sex: Male
  Weight: 121 kg

DRUGS (6)
  1. RISPERDAL CONSTA [Suspect]
     Route: 030
  2. RISPERDAL CONSTA [Suspect]
     Indication: SCHIZOPHRENIA
     Route: 030
  3. RISPERDAL [Suspect]
     Indication: SCHIZOPHRENIA
     Route: 048
  4. SEROQUEL [Concomitant]
  5. NEUROCIL [Concomitant]
  6. ERGENYL [Concomitant]

REACTIONS (7)
  - CHILLS [None]
  - DRUG LEVEL INCREASED [None]
  - DYSKINESIA [None]
  - GAIT DISTURBANCE [None]
  - LIBIDO DECREASED [None]
  - SOMNOLENCE [None]
  - WEIGHT INCREASED [None]
